FAERS Safety Report 9378996 (Version 1)
Quarter: 2013Q3

REPORT INFORMATION
  Report Type: Spontaneous
  Country: US (occurrence: US)
  Receive Date: 20130702
  Receipt Date: 20130702
  Transmission Date: 20140515
  Serious: No
  Sender: FDA-Public Use
  Company Number: US-009507513-1306USA012715

PATIENT
  Sex: Female

DRUGS (2)
  1. NEXPLANON [Suspect]
     Indication: CONTRACEPTION
     Dosage: 68 UNK, UNK
     Route: 059
     Dates: start: 201304
  2. IMPLANON [Suspect]

REACTIONS (1)
  - Implant site pain [Not Recovered/Not Resolved]
